FAERS Safety Report 24394477 (Version 2)
Quarter: 2024Q4

REPORT INFORMATION
  Report Type: Spontaneous
  Country: PT (occurrence: PT)
  Receive Date: 20241004
  Receipt Date: 20241005
  Transmission Date: 20250115
  Serious: Yes (Hospitalization, Other)
  Sender: CELLTRION
  Company Number: PT-ABBVIE-5680115

PATIENT

DRUGS (1)
  1. ADALIMUMAB [Suspect]
     Active Substance: ADALIMUMAB
     Indication: Crohn^s disease
     Route: 058

REACTIONS (4)
  - Crohn^s disease [Unknown]
  - Tumour fistulisation [Unknown]
  - Intestinal obstruction [Unknown]
  - Small intestine adenocarcinoma [Unknown]
